FAERS Safety Report 4394606-6 (Version None)
Quarter: 2004Q3

REPORT INFORMATION
  Report Type: 
  Country: None (occurrence: None)
  Receive Date: 20040712
  Receipt Date: 20040702
  Transmission Date: 20050211
  Serious: Yes (Hospitalization)
  Sender: FDA-Public Use
  Company Number: JP-ROCHE-373071

PATIENT
  Age: 64 Year
  Sex: Male
  Weight: 60.8 kg

DRUGS (4)
  1. PEGASYS [Suspect]
     Indication: HEPATITIS C
     Route: 058
     Dates: start: 20040419
  2. URSO [Concomitant]
     Route: 048
  3. MAZULENE S [Concomitant]
     Route: 048
  4. TSUKUSHI AM [Concomitant]
     Route: 048

REACTIONS (1)
  - GASTRIC CANCER [None]
